FAERS Safety Report 7410740-8 (Version None)
Quarter: 2011Q2

REPORT INFORMATION
  Report Type: 
  Country: None (occurrence: None)
  Receive Date: 20110405
  Receipt Date: 20110321
  Transmission Date: 20111010
  Serious: Yes (Hospitalization)
  Sender: FDA-Public Use
  Company Number: 2011-0824

PATIENT
  Age: 66 Year
  Sex: Male

DRUGS (1)
  1. DYSPORT [Suspect]
     Indication: MUSCLE SPASTICITY
     Dosage: 1500 UNITS (1500 UNITS,SINGLE CYCLE),INTRAMUSCULAR
     Route: 030
     Dates: start: 20100901, end: 20100901

REACTIONS (5)
  - UPPER MOTOR NEURONE LESION [None]
  - MUSCLE CONTRACTIONS INVOLUNTARY [None]
  - CONDITION AGGRAVATED [None]
  - DYSPHAGIA [None]
  - DYSARTHRIA [None]
